FAERS Safety Report 8042745-0 (Version None)
Quarter: 2011Q4

REPORT INFORMATION
  Report Type: 
  Country: None (occurrence: None)
  Receive Date: 20111209
  Receipt Date: 20110906
  Transmission Date: 20120403
  Serious: Yes (Other)
  Sender: FDA-Public Use
  Company Number: 7081564

PATIENT
  Age: 38 Year
  Sex: Female
  Weight: 41 kg

DRUGS (5)
  1. CLONAZEPAM [Concomitant]
  2. AVONEX [Concomitant]
  3. DITROPAN XL [Concomitant]
  4. CARDURA [Concomitant]
  5. NOVANTRONE [Suspect]
     Dosage: 15 MG, 1 IN 3 M, INTRAVENOUS (NOT OTHERWISE SPECIFIED)
     Route: 042
     Dates: start: 20020306, end: 20030225

REACTIONS (1)
  - MENSTRUAL DISORDER [None]
